FAERS Safety Report 4996351-2 (Version None)
Quarter: 2006Q2

REPORT INFORMATION
  Report Type: 
  Country: None (occurrence: None)
  Receive Date: 20060509
  Receipt Date: 20060425
  Transmission Date: 20061013
  Serious: Yes (Hospitalization)
  Sender: FDA-Public Use
  Company Number: DE-AMGEN-UK177585

PATIENT
  Sex: Female

DRUGS (4)
  1. NEULASTA [Suspect]
     Indication: CHEMOTHERAPY
     Route: 042
     Dates: start: 20060317, end: 20060317
  2. DOCETAXEL [Concomitant]
     Route: 042
     Dates: start: 20060216, end: 20060315
  3. ADRIAMYCIN PFS [Concomitant]
     Route: 042
     Dates: start: 20060315, end: 20060315
  4. CYCLOPHOSPHAMIDE [Concomitant]
     Route: 042
     Dates: start: 20060315, end: 20060316

REACTIONS (3)
  - NEUTROPENIA [None]
  - PYREXIA [None]
  - URINARY TRACT INFECTION [None]
